FAERS Safety Report 20742025 (Version 1)
Quarter: 2022Q2

REPORT INFORMATION
  Report Type: Spontaneous
  Country: FR (occurrence: FR)
  Receive Date: 20220423
  Receipt Date: 20220423
  Transmission Date: 20220720
  Serious: Yes (Hospitalization)
  Sender: FDA-Public Use
  Company Number: None

PATIENT
  Age: 56 Year
  Sex: Male
  Weight: 61 kg

DRUGS (1)
  1. ALLOPURINOL [Suspect]
     Active Substance: ALLOPURINOL
     Indication: Gout
     Dosage: UNIT DOSE : 100 MG, FREQUENCY TIME : 1 DAYS, THERAPY DURATION : 28 DAYS
     Route: 048
     Dates: start: 20220217, end: 20220317

REACTIONS (4)
  - Cheilitis [Recovering/Resolving]
  - Purpura [Recovering/Resolving]
  - Conjunctivitis [Recovering/Resolving]
  - Genital erosion [Recovering/Resolving]

NARRATIVE: CASE EVENT DATE: 20220301
